FAERS Safety Report 4435227-6 (Version None)
Quarter: 2004Q3

REPORT INFORMATION
  Report Type: 
  Country: None (occurrence: None)
  Receive Date: 20040827
  Receipt Date: 20040302
  Transmission Date: 20050211
  Serious: Yes (Hospitalization)
  Sender: FDA-Public Use
  Company Number: JP-GLAXOSMITHKLINE-B0325842A

PATIENT
  Age: 70 Year
  Sex: Male
  Weight: 62 kg

DRUGS (8)
  1. VALTREX [Suspect]
     Indication: HERPES ZOSTER
     Dosage: 1000MG PER DAY
     Route: 048
     Dates: start: 20031203, end: 20031204
  2. LASIX [Concomitant]
     Dosage: 40MG PER DAY
     Route: 048
  3. ONEALFA [Concomitant]
     Dosage: .25MCG PER DAY
     Route: 048
  4. CALCIUM CARBONATE [Concomitant]
     Dosage: 2.01G PER DAY
     Route: 048
  5. LENDORM [Concomitant]
     Indication: INSOMNIA
     Dosage: 1U PER DAY
     Route: 048
  6. HAEMODIALYSIS [Concomitant]
  7. CARBOCISTEINE [Concomitant]
     Indication: UPPER RESPIRATORY TRACT INFECTION
     Dosage: 2TAB PER DAY
     Route: 048
     Dates: start: 20031203, end: 20031205
  8. PL [Concomitant]
     Indication: UPPER RESPIRATORY TRACT INFECTION
     Dosage: 2G PER DAY
     Route: 048
     Dates: start: 20031203, end: 20031205

REACTIONS (3)
  - HALLUCINATION, VISUAL [None]
  - LACUNAR INFARCTION [None]
  - SOMNOLENCE [None]
